FAERS Safety Report 7203658-7 (Version None)
Quarter: 2010Q4

REPORT INFORMATION
  Report Type: 
  Country: None (occurrence: None)
  Receive Date: 20101230
  Receipt Date: 20101221
  Transmission Date: 20110411
  Serious: Yes (Death, Other)
  Sender: FDA-Public Use
  Company Number: US-GENZYME-THYM-1002205

PATIENT
  Age: 45 Year
  Sex: Male

DRUGS (7)
  1. THYMOGLOBULIN [Suspect]
     Indication: PROPHYLAXIS AGAINST TRANSPLANT REJECTION
     Route: 042
  2. THYMOGLOBULIN [Suspect]
     Indication: ACUTE GRAFT VERSUS HOST DISEASE
     Dosage: 1.5 MG/KG, QD
     Route: 042
  3. METHYLPREDNISOLONE [Concomitant]
     Indication: PROPHYLAXIS AGAINST TRANSPLANT REJECTION
  4. METHYLPREDNISOLONE [Concomitant]
     Indication: ACUTE GRAFT VERSUS HOST DISEASE
  5. MYCOPHENOLATE MOFETIL [Concomitant]
     Indication: PROPHYLAXIS AGAINST TRANSPLANT REJECTION
  6. TACROLIMUS [Concomitant]
     Indication: IMMUNOSUPPRESSION
  7. TACROLIMUS [Concomitant]
     Indication: ACUTE GRAFT VERSUS HOST DISEASE

REACTIONS (8)
  - ACUTE GRAFT VERSUS HOST DISEASE [None]
  - BACTERAEMIA [None]
  - COMPLICATIONS OF TRANSPLANTED PANCREAS [None]
  - ENTEROCUTANEOUS FISTULA [None]
  - FUNGAEMIA [None]
  - GRAFT HAEMORRHAGE [None]
  - SEPSIS [None]
  - THROMBOCYTOPENIA [None]
